FAERS Safety Report 5381512-3 (Version None)
Quarter: 2007Q2

REPORT INFORMATION
  Report Type: 
  Country: None (occurrence: None)
  Receive Date: 20070629
  Receipt Date: 20061208
  Transmission Date: 20071010
  Serious: Yes (Other)
  Sender: FDA-Public Use
  Company Number: 2006151839

PATIENT
  Age: 28 Year
  Sex: Female
  Weight: 90.7194 kg

DRUGS (4)
  1. ZOLOFT [Suspect]
     Indication: PANIC ATTACK
     Dosage: 100 MG (100 MG, 1 IN 1 D)
  2. CALCIUM (CALCIUM) [Concomitant]
  3. MULTIVITAMIN [Concomitant]
  4. CENTRUM SILVER (ASCORBIC ACID, CALCIUM, MINERALS NOS, RETINOL, TOCOPHE [Concomitant]

REACTIONS (5)
  - DRUG ERUPTION [None]
  - DRY SKIN [None]
  - ECZEMA [None]
  - SKIN EXFOLIATION [None]
  - WEIGHT INCREASED [None]
